FAERS Safety Report 9787625 (Version 1)
Quarter: 2013Q4

REPORT INFORMATION
  Report Type: Spontaneous
  Country: GB (occurrence: GB)
  Receive Date: 20131230
  Receipt Date: 20131230
  Transmission Date: 20140711
  Serious: Yes (Life-Threatening)
  Sender: FDA-Public Use
  Company Number: GB-RANBAXY-2013R1-76355

PATIENT
  Age: 38 Year
  Sex: Female
  Weight: 75 kg

DRUGS (5)
  1. FLUOXETINE [Suspect]
     Indication: DEPRESSION
     Dosage: UNK
     Route: 048
     Dates: start: 20131111, end: 20131111
  2. CANESTEN [Concomitant]
     Indication: VULVOVAGINAL CANDIDIASIS
     Dosage: UNK
     Route: 061
     Dates: start: 20131107, end: 20131114
  3. CANESTEN [Concomitant]
     Dosage: UNK
     Route: 067
     Dates: start: 20131107, end: 20131114
  4. ERYTHROMYCIN [Concomitant]
     Indication: LOWER RESPIRATORY TRACT INFECTION
     Dosage: 250 MG, QID
     Route: 048
     Dates: start: 20131023, end: 20131030
  5. CERAZETTE [Concomitant]
     Indication: CONTRACEPTION
     Dosage: UNK
     Route: 048
     Dates: start: 20091208

REACTIONS (1)
  - Anaphylactic reaction [Recovered/Resolved]
